FAERS Safety Report 23312521 (Version 2)
Quarter: 2023Q4

REPORT INFORMATION
  Report Type: Spontaneous
  Country: CA (occurrence: CA)
  Receive Date: 20231219
  Receipt Date: 20231221
  Transmission Date: 20240110
  Serious: Yes (Death, Other)
  Sender: FDA-Public Use
  Company Number: CA-CELLTRION INC.-2023CA024242

PATIENT

DRUGS (2)
  1. INFLECTRA [Suspect]
     Active Substance: INFLIXIMAB-DYYB
     Indication: Sarcoidosis
     Dosage: WEEK 0 , 2, 6 WEEK, THEN Q 6WEEKS
     Route: 042
     Dates: start: 20211005, end: 20230411
  2. INFLECTRA [Suspect]
     Active Substance: INFLIXIMAB-DYYB
     Dosage: EVERY 12 WEEK
     Route: 042
     Dates: start: 20230608

REACTIONS (1)
  - Coma [Fatal]

NARRATIVE: CASE EVENT DATE: 20230101
